FAERS Safety Report 19938290 (Version 2)
Quarter: 2022Q1

REPORT INFORMATION
  Report Type: Report from Study
  Country: IT (occurrence: None)
  Receive Date: 20211011
  Receipt Date: 20220110
  Transmission Date: 20220423
  Serious: No
  Sender: FDA-Public Use
  Company Number: IT-ROCHE-2899767

PATIENT
  Age: 67 Year
  Sex: Female
  Weight: 70 kg

DRUGS (6)
  1. TRASTUZUMAB [Suspect]
     Active Substance: TRASTUZUMAB
     Indication: Breast cancer
     Dosage: LAST DOSE BEFORE SAE: 16/JUL/2021?TOTAL DOSE OF LAST ADMINISTARTION BEFORE SAE ONSET: 560
     Route: 041
     Dates: start: 20210716
  2. PACLITAXEL [Suspect]
     Active Substance: PACLITAXEL
     Indication: Breast cancer
     Dosage: LAST DOSE BEFORE SAE: 23/JUL/2021?TOTAL DOSE OF LAST ADMINISTARTION BEFORE SAE ONSET: 160.20 MG
     Route: 042
     Dates: start: 20210716
  3. PERTUZUMAB [Concomitant]
     Active Substance: PERTUZUMAB
     Indication: Breast cancer
     Dosage: LAST DOSE BEFORE SAE: 16/JUL/2021?TOTAL DOSE OF LAST ADMINISTARTION BEFORE SAE ONSET: 420
     Route: 042
     Dates: start: 20210716
  4. BISOPROLOL FUMARATE [Concomitant]
     Active Substance: BISOPROLOL FUMARATE
     Indication: Sinus tachycardia
  5. CARBOPLATIN [Concomitant]
     Active Substance: CARBOPLATIN
     Route: 042
     Dates: start: 20210716
  6. ATEZOLIZUMAB [Concomitant]
     Active Substance: ATEZOLIZUMAB
     Route: 041
     Dates: start: 20210716

REACTIONS (2)
  - Chest discomfort [Recovered/Resolved]
  - Chest discomfort [Recovered/Resolved]

NARRATIVE: CASE EVENT DATE: 20210716
